FAERS Safety Report 15849212 (Version 1)
Quarter: 2019Q1

REPORT INFORMATION
  Report Type: Spontaneous
  Country: DE (occurrence: DE)
  Receive Date: 20190121
  Receipt Date: 20190121
  Transmission Date: 20190417
  Serious: Yes (Life-Threatening, Hospitalization)
  Sender: FDA-Public Use
  Company Number: DE-ELI_LILLY_AND_COMPANY-DE201901007887

PATIENT
  Age: 57 Year
  Sex: Female
  Weight: 81 kg

DRUGS (6)
  1. OLARATUMAB [Suspect]
     Active Substance: OLARATUMAB
     Indication: PRODUCT USED FOR UNKNOWN INDICATION
     Dosage: 20 MG/KG, UNKNOWN
     Route: 065
     Dates: start: 20181127, end: 20181127
  2. LIPEGFILGRASTIM [Concomitant]
     Active Substance: LIPEGFILGRASTIM
     Indication: PRODUCT USED FOR UNKNOWN INDICATION
     Dosage: 6 MG, UNKNOWN
     Route: 058
     Dates: start: 20181127, end: 20181127
  3. DEXRAZOXANE HCL [Suspect]
     Active Substance: DEXRAZOXANE HYDROCHLORIDE
     Indication: PRODUCT USED FOR UNKNOWN INDICATION
     Dosage: 750 MG/M2, UNKNOWN
     Route: 065
     Dates: start: 20181127, end: 20181127
  4. OLARATUMAB [Suspect]
     Active Substance: OLARATUMAB
     Dosage: 20 MG/KG, UNKNOWN
     Route: 065
     Dates: start: 20181208, end: 20181208
  5. DOXORUBICIN [Suspect]
     Active Substance: DOXORUBICIN
     Indication: PRODUCT USED FOR UNKNOWN INDICATION
     Dosage: 75 MG/M2, UNKNOWN
     Route: 065
     Dates: start: 20181208, end: 20181208
  6. DOXORUBICIN [Suspect]
     Active Substance: DOXORUBICIN
     Dosage: 75 MG/M2, UNK
     Route: 065
     Dates: start: 20181127, end: 20181127

REACTIONS (1)
  - Bone marrow failure [Recovered/Resolved]

NARRATIVE: CASE EVENT DATE: 20181204
